FAERS Safety Report 9112922 (Version 1)
Quarter: 2013Q1

REPORT INFORMATION
  Report Type: Spontaneous
  Country: US (occurrence: US)
  Receive Date: 20130211
  Receipt Date: 20130211
  Transmission Date: 20140127
  Serious: Yes (Other)
  Sender: FDA-Public Use
  Company Number: US-TEVA-384859USA

PATIENT
  Sex: Female
  Weight: 56.75 kg

DRUGS (6)
  1. QNASL [Suspect]
     Indication: RHINITIS SEASONAL
     Route: 045
     Dates: start: 20121223
  2. QNASL [Suspect]
     Indication: RHINITIS PERENNIAL
  3. ZYRTEC [Concomitant]
     Indication: HYPERSENSITIVITY
     Dosage: 10 MILLIGRAM DAILY;
     Route: 048
  4. NEXIUM [Concomitant]
     Indication: GASTROOESOPHAGEAL REFLUX DISEASE
     Dosage: QHS
     Route: 048
  5. PREVACID [Concomitant]
     Indication: GASTROOESOPHAGEAL REFLUX DISEASE
     Dosage: QD
     Route: 048
  6. SUDAFED [Concomitant]
     Indication: NASAL DECONGESTION THERAPY
     Dosage: 30 MILLIGRAM DAILY;
     Route: 048

REACTIONS (2)
  - Cardiac flutter [Not Recovered/Not Resolved]
  - Insomnia [Not Recovered/Not Resolved]
